FAERS Safety Report 8219602-X (Version None)
Quarter: 2012Q1

REPORT INFORMATION
  Report Type: 
  Country: None (occurrence: None)
  Receive Date: 20120319
  Receipt Date: 20120313
  Transmission Date: 20120608
  Serious: Yes (Other)
  Sender: FDA-Public Use
  Company Number: AU-ALLERGAN-1203652US

PATIENT
  Sex: Female

DRUGS (1)
  1. OPTIVEA? [Suspect]
     Indication: PRODUCT USED FOR UNKNOWN INDICATION
     Dosage: UNK
     Route: 047
     Dates: start: 20110101

REACTIONS (3)
  - ANAPHYLACTIC REACTION [None]
  - RASH [None]
  - SWELLING FACE [None]
